FAERS Safety Report 9996848 (Version 1)
Quarter: 2014Q1

REPORT INFORMATION
  Report Type: Spontaneous
  Country: US (occurrence: US)
  Receive Date: 20140311
  Receipt Date: 20140311
  Transmission Date: 20141002
  Serious: No
  Sender: FDA-Public Use
  Company Number: US-GLAXOSMITHKLINE-A1009608A

PATIENT
  Age: 48 Year
  Sex: Female

DRUGS (1)
  1. NICORETTE WHITE ICE OTC 2MG [Suspect]
     Indication: EX-TOBACCO USER
     Dates: end: 20130122

REACTIONS (5)
  - Palpitations [Recovered/Resolved]
  - Vision blurred [Recovered/Resolved]
  - Dizziness [Recovered/Resolved]
  - Metamorphopsia [Recovered/Resolved]
  - Product quality issue [Unknown]
